FAERS Safety Report 8383821-2 (Version None)
Quarter: 2012Q1

REPORT INFORMATION
  Report Type: 
  Country: None (occurrence: None)
  Receive Date: 20120323
  Receipt Date: 20110325
  Transmission Date: 20120608
  Serious: Yes (Other)
  Sender: FDA-Public Use
  Company Number: 163-21880-11030773

PATIENT
  Age: 48 Year
  Sex: Male

DRUGS (5)
  1. PREDNISONE TAB [Concomitant]
  2. ASPIRIN [Concomitant]
  3. PERCOCET [Concomitant]
  4. REVLIMID [Suspect]
     Indication: MULTIPLE MYELOMA
     Dosage: 25 MG, DAILY X 21 DAYS, PO
     Route: 048
     Dates: start: 20120506
  5. AMBIEN [Concomitant]

REACTIONS (1)
  - PNEUMONIA [None]
